FAERS Safety Report 15761840 (Version 1)
Quarter: 2018Q4

REPORT INFORMATION
  Report Type: Spontaneous
  Country: US (occurrence: US)
  Receive Date: 20181226
  Receipt Date: 20181226
  Transmission Date: 20190205
  Serious: No
  Sender: FDA-Public Use
  Company Number: US-SUNOVION-2018SUN004894

PATIENT
  Age: 46 Year
  Sex: Female
  Weight: 86.17 kg

DRUGS (1)
  1. LATUDA [Suspect]
     Active Substance: LURASIDONE HYDROCHLORIDE
     Indication: BIPOLAR II DISORDER
     Dosage: 20 MG, QD
     Route: 048
     Dates: start: 201811, end: 201811

REACTIONS (5)
  - Confusional state [Unknown]
  - Feeling abnormal [Unknown]
  - Off label use [Unknown]
  - Depression [Unknown]
  - Nausea [Unknown]
